FAERS Safety Report 21384083 (Version 1)
Quarter: 2022Q3

REPORT INFORMATION
  Report Type: Spontaneous
  Country: US (occurrence: US)
  Receive Date: 20220928
  Receipt Date: 20220928
  Transmission Date: 20221027
  Serious: No
  Sender: FDA-Public Use
  Company Number: US-SA-SAC20220923001231

PATIENT
  Age: 79 Year
  Sex: Female

DRUGS (1)
  1. CEREZYME [Suspect]
     Active Substance: IMIGLUCERASE
     Indication: Gaucher^s disease
     Dosage: 3600 MG, QOW
     Route: 042
     Dates: start: 20140703

REACTIONS (5)
  - COVID-19 [Unknown]
  - Pyrexia [Unknown]
  - Cough [Unknown]
  - Inflammation [Unknown]
  - Hypoacusis [Unknown]
